FAERS Safety Report 7022387-6 (Version None)
Quarter: 2010Q3

REPORT INFORMATION
  Report Type: 
  Country: None (occurrence: None)
  Receive Date: 20100930
  Receipt Date: 20100919
  Transmission Date: 20110219
  Serious: No
  Sender: FDA-Public Use
  Company Number: US-PFIZER INC-2010119013

PATIENT
  Sex: Female
  Weight: 70.295 kg

DRUGS (4)
  1. LYRICA [Suspect]
     Indication: FIBROMYALGIA
     Dosage: 50 MG, 3X/DAY
     Route: 048
     Dates: start: 20100917, end: 20100919
  2. LYRICA [Suspect]
     Indication: FATIGUE
  3. VICODIN [Concomitant]
     Indication: PAIN
     Dosage: UNK
  4. CLONAZEPAM [Concomitant]
     Indication: PANIC ATTACK
     Dosage: UNK

REACTIONS (3)
  - DISORIENTATION [None]
  - DIZZINESS [None]
  - MIGRAINE [None]
